FAERS Safety Report 17099872 (Version 1)
Quarter: 2019Q4

REPORT INFORMATION
  Report Type: Spontaneous
  Country: FR (occurrence: FR)
  Receive Date: 20191202
  Receipt Date: 20191202
  Transmission Date: 20200122
  Serious: Yes (Hospitalization)
  Sender: FDA-Public Use
  Company Number: FR-MYLANLABS-2019M1115501

PATIENT
  Age: 78 Year
  Sex: Male
  Weight: 67.9 kg

DRUGS (10)
  1. LOVENOX [Suspect]
     Active Substance: ENOXAPARIN SODIUM
     Indication: THROMBOSIS
     Dosage: 4000 INTERNATIONAL UNIT, QD (0-0-1)
     Route: 057
     Dates: start: 20190223
  2. DOLIPRANE [Concomitant]
     Active Substance: ACETAMINOPHEN
     Indication: PYREXIA
     Dosage: 500 MILLIGRAM, PRN (SI BESOIN (MAX 6/JOUR))
     Route: 048
     Dates: end: 20190516
  3. FINASTERIDE ARROW [Suspect]
     Active Substance: FINASTERIDE
     Indication: BENIGN PROSTATIC HYPERPLASIA
     Dosage: 5 MILLIGRAM, QD (1-0-0)
     Route: 048
     Dates: start: 20190213
  4. PANTOPRAZOLE MYLAN 40 MG, COMPRIM? GASTRO-R?SISTANT [Suspect]
     Active Substance: PANTOPRAZOLE SODIUM
     Indication: DUODENAL ULCER
     Dosage: 40 MILLIGRAM, QD (1-0-0)
     Route: 048
     Dates: start: 20190213
  5. FUROSEMIDE ARROW [Suspect]
     Active Substance: FUROSEMIDE
     Indication: OEDEMA
     Dosage: 40 MILLIGRAM, QD (1-0-0)
     Route: 048
     Dates: start: 20190226
  6. ZYMAD 80 000 UI, SOLUTION BUVABLE EN AMPOULE [Suspect]
     Active Substance: CHOLECALCIFEROL
     Indication: VITAMIN SUPPLEMENTATION
     Dosage: 80000 INTERNATIONAL UNIT
     Route: 048
     Dates: start: 20190330, end: 20190516
  7. FUMAFER [Suspect]
     Active Substance: FERROUS FUMARATE
     Indication: IRON DEFICIENCY ANAEMIA
     Dosage: 198 MILLIGRAM, QD (1-1-1)
     Route: 048
     Dates: start: 20190429, end: 20190516
  8. AMLODIPINE [Suspect]
     Active Substance: AMLODIPINE BESYLATE
     Indication: HYPERTENSION
     Dosage: 5 MILLIGRAM, QD (1-0-0)
     Route: 048
     Dates: start: 20190223
  9. CLOPIDOGREL MYLAN PHARMA 75 MG, COMPRIM? PELLICUL? [Suspect]
     Active Substance: CLOPIDOGREL BISULFATE
     Indication: CEREBROVASCULAR ACCIDENT
     Dosage: 1-0-0
     Route: 048
     Dates: start: 20190408, end: 20190522
  10. REFRESH CELLUVISC [Concomitant]
     Active Substance: CARBOXYMETHYLCELLULOSE SODIUM
     Indication: DRY EYE
     Dosage: 8 DOSAGE FORM, QD (2-2-2-2)
     Route: 047

REACTIONS (3)
  - Cholestasis [Recovering/Resolving]
  - Hepatocellular injury [Recovered/Resolved]
  - Hepatitis [Recovered/Resolved]

NARRATIVE: CASE EVENT DATE: 20190501
